FAERS Safety Report 4351395-9 (Version None)
Quarter: 2004Q2

REPORT INFORMATION
  Report Type: 
  Country: None (occurrence: None)
  Receive Date: 20040430
  Receipt Date: 20040430
  Transmission Date: 20050107
  Serious: Yes (Hospitalization)
  Sender: FDA-Public Use
  Company Number: None

PATIENT
  Age: 70 Year
  Sex: Female
  Weight: 68.9467 kg

DRUGS (5)
  1. XELODA [Suspect]
     Indication: BREAST CANCER
     Dosage: 1500 MGM ORAL
     Route: 048
     Dates: start: 20040329, end: 20040429
  2. TAXOTERE [Suspect]
     Dosage: IV
     Route: 042
     Dates: start: 20040329, end: 20040429
  3. COMPAZINE [Concomitant]
  4. HYDRATION [Concomitant]
  5. LOMOTIL [Concomitant]

REACTIONS (6)
  - ASTHENIA [None]
  - FALL [None]
  - MUCOSAL INFLAMMATION [None]
  - PALMAR-PLANTAR ERYTHRODYSAESTHESIA SYNDROME [None]
  - PHARYNGOLARYNGEAL PAIN [None]
  - VOMITING [None]
